FAERS Safety Report 8871625 (Version 1)
Quarter: 2012Q4

REPORT INFORMATION
  Report Type: 
  Country: US (occurrence: US)
  Receive Date: 20121026
  Receipt Date: 20121026
  Transmission Date: 20130627
  Serious: No
  Sender: FDA-Public Use
  Company Number: US-AMGEN-USASP2012048789

PATIENT
  Age: 71 Year
  Sex: Female
  Weight: 49.8 kg

DRUGS (7)
  1. ENBREL [Suspect]
     Indication: RHEUMATOID ARTHRITIS
     Dosage: 50 mg, qwk
     Route: 058
     Dates: start: 2006
  2. CENTRUM SILVER                     /02363801/ [Concomitant]
     Dosage: UNK
  3. PREDNISONE [Concomitant]
     Dosage: UNK
  4. METHOTREXATE [Concomitant]
     Dosage: UNK
  5. ALENDRONATE [Concomitant]
     Dosage: UNK
  6. VITAMIN D /00107901/ [Concomitant]
     Dosage: UNK
  7. FOLIC ACID [Concomitant]
     Dosage: UNK

REACTIONS (2)
  - Upper-airway cough syndrome [Not Recovered/Not Resolved]
  - Sinus disorder [Not Recovered/Not Resolved]
